FAERS Safety Report 7147832-7 (Version None)
Quarter: 2010Q4

REPORT INFORMATION
  Report Type: 
  Country: None (occurrence: None)
  Receive Date: 20101206
  Receipt Date: 20101206
  Transmission Date: 20110411
  Serious: Yes (Life-Threatening, Hospitalization, Other)
  Sender: FDA-Public Use
  Company Number: None

PATIENT
  Age: 40 Year
  Sex: Female
  Weight: 75.2971 kg

DRUGS (13)
  1. YAZ [Suspect]
     Indication: ENDOMETRIOSIS
     Dosage: 1 PILL QDAY PO
     Route: 048
     Dates: start: 20080101, end: 20100101
  2. ADVAIR [Concomitant]
  3. NASONEX [Concomitant]
  4. ZYRTEC [Concomitant]
  5. SAVELLA [Concomitant]
  6. HYDROCODINE (PRN) [Concomitant]
  7. DETROL (PRN) [Concomitant]
  8. ADVAIR [Concomitant]
  9. ZYRTEC [Concomitant]
  10. HYDROCODONE [Concomitant]
  11. NASONEX [Concomitant]
  12. DETROL [Concomitant]
  13. SAVELLA [Concomitant]

REACTIONS (2)
  - METASTASES TO LYMPH NODES [None]
  - THYROID CANCER [None]
